FAERS Safety Report 4539830-4 (Version None)
Quarter: 2004Q4

REPORT INFORMATION
  Report Type: 
  Country: None (occurrence: None)
  Receive Date: 20041228
  Receipt Date: 20041216
  Transmission Date: 20050328
  Serious: Yes (Other)
  Sender: FDA-Public Use
  Company Number: DE-BRISTOL-MYERS SQUIBB COMPANY-12805701

PATIENT
  Age: 75 Year
  Sex: Female
  Weight: 69 kg

DRUGS (5)
  1. TAXOL [Suspect]
     Indication: BREAST CANCER METASTATIC
     Route: 042
     Dates: start: 20041213, end: 20041213
  2. NEUROCIL [Concomitant]
     Route: 048
     Dates: start: 20041213, end: 20041213
  3. METOCLOPRAMIDE HYDROCHLORIDE [Concomitant]
     Route: 048
     Dates: start: 20041213, end: 20041213
  4. DEXAMETHASONE [Concomitant]
     Route: 048
     Dates: start: 20041213, end: 20041213
  5. SPIRONOLACTONE [Concomitant]
     Route: 048
     Dates: start: 20041213, end: 20041213

REACTIONS (1)
  - CORNEAL OEDEMA [None]
